FAERS Safety Report 6368582-0 (Version None)
Quarter: 2009Q3

REPORT INFORMATION
  Report Type: 
  Country: None (occurrence: None)
  Receive Date: 20090922
  Receipt Date: 20090515
  Transmission Date: 20100115
  Serious: No
  Sender: FDA-Public Use
  Company Number: US-BRISTOL-MYERS SQUIBB COMPANY-14622245

PATIENT
  Age: 3 Decade
  Sex: Female

DRUGS (1)
  1. BUSPAR [Suspect]
     Indication: ANXIETY
     Route: 048

REACTIONS (3)
  - DRUG SCREEN POSITIVE [None]
  - NORMAL NEWBORN [None]
  - PREGNANCY [None]
